FAERS Safety Report 19704739 (Version 6)
Quarter: 2023Q2

REPORT INFORMATION
  Report Type: Spontaneous
  Country: US (occurrence: US)
  Receive Date: 20210816
  Receipt Date: 20230420
  Transmission Date: 20230722
  Serious: Yes (Other)
  Sender: FDA-Public Use
  Company Number: US-PFIZER INC-202101041205

PATIENT
  Age: 60 Year
  Sex: Female
  Weight: 91.17 kg

DRUGS (1)
  1. XELJANZ XR [Suspect]
     Active Substance: TOFACITINIB CITRATE
     Indication: Rheumatoid arthritis
     Dosage: 11 MG, DAILY
     Route: 048
     Dates: start: 202106

REACTIONS (8)
  - Spinal operation [Unknown]
  - Cough [Unknown]
  - Malaise [Unknown]
  - Gait inability [Unknown]
  - Hypoaesthesia [Recovering/Resolving]
  - Impaired quality of life [Unknown]
  - Confusional state [Unknown]
  - Frustration tolerance decreased [Unknown]

NARRATIVE: CASE EVENT DATE: 20210810
